FAERS Safety Report 19886685 (Version 1)
Quarter: 2021Q3

REPORT INFORMATION
  Report Type: Spontaneous
  Country: GB (occurrence: GB)
  Receive Date: 20210927
  Receipt Date: 20210927
  Transmission Date: 20211014
  Serious: Yes (Other)
  Sender: FDA-Public Use
  Company Number: GB-PFIZER INC-202101193075

PATIENT
  Age: 36 Year
  Sex: Female
  Weight: 51 kg

DRUGS (2)
  1. LEVOTHYROXINE. [Concomitant]
     Active Substance: LEVOTHYROXINE
     Dosage: UNK
  2. SYNAREL [Suspect]
     Active Substance: NAFARELIN ACETATE
     Dosage: 2 DF EVERY 12 HOURS
     Route: 045
     Dates: start: 20210819, end: 20210901

REACTIONS (6)
  - Dyspnoea [Unknown]
  - Haemoptysis [Unknown]
  - Ocular discomfort [Unknown]
  - Cough [Not Recovered/Not Resolved]
  - Headache [Unknown]
  - Fatigue [Unknown]

NARRATIVE: CASE EVENT DATE: 20210819
